FAERS Safety Report 7922401-7 (Version None)
Quarter: 2011Q4

REPORT INFORMATION
  Report Type: 
  Country: None (occurrence: None)
  Receive Date: 20111117
  Receipt Date: 20110120
  Transmission Date: 20120403
  Serious: No
  Sender: FDA-Public Use
  Company Number: US-AMGEN-USASP2011003916

PATIENT
  Age: 51 Year
  Sex: Male
  Weight: 99 kg

DRUGS (5)
  1. METOPROLOL TARTRATE [Concomitant]
     Dosage: 25 MG, UNK
  2. SULFASALAZINE [Concomitant]
     Dosage: 500 MG, UNK
  3. ENBREL [Suspect]
     Indication: PRODUCT USED FOR UNKNOWN INDICATION
     Dosage: 50 MG, QWK
  4. VITAMIN D [Concomitant]
     Dosage: 1000 U/L, UNK
  5. FOLIC ACID [Concomitant]
     Dosage: 1 MG, UNK

REACTIONS (1)
  - INJECTION SITE HAEMATOMA [None]
